FAERS Safety Report 8850469 (Version 1)
Quarter: 2012Q4

REPORT INFORMATION
  Report Type: 
  Country: DE (occurrence: DE)
  Receive Date: 20121019
  Receipt Date: 20121019
  Transmission Date: 20130627
  Serious: Yes (Other)
  Sender: FDA-Public Use
  Company Number: GXKR2012DE003253

PATIENT

DRUGS (5)
  1. PRAVASTATIN [Suspect]
     Indication: TYPE IIB HYPERLIPIDAEMIA
     Dosage: 30 mg/day (for a few days)
     Route: 048
     Dates: start: 200506
  2. FLUVASTATIN [Suspect]
     Indication: TYPE IIB HYPERLIPIDAEMIA
     Dosage: 20 mg/day
     Route: 048
     Dates: start: 200508
  3. SIMVASTATIN [Suspect]
     Indication: TYPE IIB HYPERLIPIDAEMIA
     Dosage: 10-20mg/day
     Route: 048
     Dates: start: 201106, end: 201210
  4. TREDAPTIVE [Suspect]
     Indication: TYPE IIB HYPERLIPIDAEMIA
     Dosage: 1000 mg/day
     Route: 048
     Dates: start: 201007, end: 201010
  5. EZETROL [Suspect]
     Indication: TYPE IIB HYPERLIPIDAEMIA
     Dosage: 10 mg/day
     Route: 048
     Dates: start: 200608

REACTIONS (6)
  - Faecal incontinence [Recovered/Resolved]
  - Diarrhoea [Recovered/Resolved]
  - Myalgia [Recovered/Resolved]
  - Nausea [Recovered/Resolved]
  - Pruritus [Recovered/Resolved]
  - Rash [Recovered/Resolved]
